FAERS Safety Report 4859736-0 (Version None)
Quarter: 2005Q4

REPORT INFORMATION
  Report Type: 
  Country: None (occurrence: None)
  Receive Date: 20051219
  Receipt Date: 20051205
  Transmission Date: 20060501
  Serious: Yes (Hospitalization)
  Sender: FDA-Public Use
  Company Number: US-JNJFOC-20030803572

PATIENT
  Sex: Female
  Weight: 46.72 kg

DRUGS (15)
  1. REMICADE [Suspect]
     Route: 042
  2. REMICADE [Suspect]
     Route: 042
  3. REMICADE [Suspect]
     Route: 042
  4. REMICADE [Suspect]
     Route: 042
  5. REMICADE [Suspect]
     Route: 042
  6. REMICADE [Suspect]
     Route: 042
  7. REMICADE [Suspect]
     Indication: UVEITIS
     Route: 042
  8. PREDNISONE TAB [Suspect]
     Indication: UVEITIS
     Dosage: 10-20 MG QD
  9. PRED FORTE [Concomitant]
     Dosage: RIGHT EYE
     Route: 031
  10. FOLIC ACID [Concomitant]
  11. METHOTREXATE [Concomitant]
  12. PREDNISONE TAB [Concomitant]
  13. CYCLOGYL [Concomitant]
     Dosage: BOTH EYES
  14. INDERAL [Concomitant]
  15. CARAFATE [Concomitant]

REACTIONS (4)
  - BRADYARRHYTHMIA [None]
  - CONVULSION [None]
  - LOSS OF CONSCIOUSNESS [None]
  - MYOCARDIAL INFARCTION [None]
